FAERS Safety Report 23059040 (Version 2)
Quarter: 2023Q4

REPORT INFORMATION
  Report Type: Spontaneous
  Country: CO (occurrence: CO)
  Receive Date: 20231012
  Receipt Date: 20231114
  Transmission Date: 20240110
  Serious: No
  Sender: FDA-Public Use
  Company Number: CO-PFIZER INC-PV202300157914

PATIENT

DRUGS (1)
  1. GENOTROPIN [Suspect]
     Active Substance: SOMATROPIN
     Dosage: 1.4 MG
     Route: 058

REACTIONS (4)
  - Incorrect dose administered by device [Unknown]
  - Device malfunction [Unknown]
  - Device physical property issue [Unknown]
  - Device delivery system issue [Unknown]
